FAERS Safety Report 8478353-7 (Version None)
Quarter: 2012Q2

REPORT INFORMATION
  Report Type: 
  Country: None (occurrence: None)
  Receive Date: 20120629
  Receipt Date: 20120619
  Transmission Date: 20120825
  Serious: Yes (Death, Life-Threatening, Hospitalization, Other)
  Sender: FDA-Public Use
  Company Number: US-BAYER-2011-073271

PATIENT
  Age: 29 Year
  Sex: Female
  Weight: 91 kg

DRUGS (15)
  1. LISINOPRIL [Concomitant]
     Indication: HYPERTENSION
  2. YASMIN [Suspect]
     Indication: CONTRACEPTION
     Dosage: UNK
     Dates: start: 20080101, end: 20080301
  3. VYTORIN [Concomitant]
     Indication: BLOOD CHOLESTEROL INCREASED
  4. APIDRA [Concomitant]
     Dosage: UNK
     Route: 058
  5. TOPAMAX [Concomitant]
  6. ADVAIR DISKUS 100/50 [Concomitant]
     Indication: ASTHMA
     Route: 045
  7. ACIPHEX [Concomitant]
     Dosage: 20 MG, UNK
  8. PROVENTIL [Concomitant]
     Route: 045
  9. FLUCONAZOLE [Concomitant]
  10. LANTUS [Concomitant]
     Indication: DIABETES MELLITUS
     Dosage: 10 UNITS, HS
  11. ASPIRIN [Concomitant]
  12. GLYBURIDE [Concomitant]
     Indication: DIABETES MELLITUS
     Dosage: UNK
  13. PREDNISONE [Concomitant]
     Indication: ASTHMA
  14. ALBUTEROL SULFATE [Concomitant]
     Indication: ASTHMA
  15. PROMETHAZINE [Concomitant]

REACTIONS (12)
  - SHORT-BOWEL SYNDROME [None]
  - PULMONARY EMBOLISM [None]
  - ANHEDONIA [None]
  - INTESTINAL ISCHAEMIA [None]
  - PAIN [None]
  - NAUSEA [None]
  - INTESTINAL OBSTRUCTION [None]
  - HEPATIC FAILURE [None]
  - PORTAL VEIN THROMBOSIS [None]
  - RENAL FAILURE [None]
  - ANXIETY [None]
  - VOMITING [None]
